FAERS Safety Report 20570199 (Version 3)
Quarter: 2022Q2

REPORT INFORMATION
  Report Type: Report from Study
  Country: CA (occurrence: CA)
  Receive Date: 20220309
  Receipt Date: 20220525
  Transmission Date: 20220721
  Serious: Yes (Other)
  Sender: FDA-Public Use
  Company Number: CA-JNJFOC-20220306215

PATIENT
  Age: 51 Year
  Sex: Male
  Weight: 125 kg

DRUGS (1)
  1. REMICADE [Suspect]
     Active Substance: INFLIXIMAB
     Indication: Crohn^s disease
     Dosage: DOSE IS ROUNDED?CONTINUED ON 06-MAY-2020
     Route: 042
     Dates: start: 20200505

REACTIONS (4)
  - COVID-19 [Unknown]
  - Incorrect dose administered [Unknown]
  - Off label use [Unknown]
  - Incorrect drug administration rate [Unknown]

NARRATIVE: CASE EVENT DATE: 20220101
